FAERS Safety Report 19429760 (Version 1)
Quarter: 2021Q2

REPORT INFORMATION
  Report Type: Spontaneous
  Country: US (occurrence: US)
  Receive Date: 20210617
  Receipt Date: 20210617
  Transmission Date: 20210717
  Serious: Yes (Hospitalization, Other)
  Sender: FDA-Public Use
  Company Number: US-HIKMA PHARMACEUTICALS USA INC.-US-H14001-21-02841

PATIENT
  Age: 41 Year
  Sex: Male

DRUGS (1)
  1. DISULFIRAM. [Suspect]
     Active Substance: DISULFIRAM
     Indication: ALCOHOL USE DISORDER
     Dosage: UNKNOWN
     Route: 065

REACTIONS (4)
  - Shock [Unknown]
  - Flushing [Unknown]
  - Hypoxia [Unknown]
  - Hypotension [Recovered/Resolved]
